FAERS Safety Report 9257358 (Version 3)
Quarter: 2013Q4

REPORT INFORMATION
  Report Type: Spontaneous
  Country: US (occurrence: US)
  Receive Date: 20130426
  Receipt Date: 20131001
  Transmission Date: 20140711
  Serious: Yes (Disabling, Other)
  Sender: FDA-Public Use
  Company Number: US-ASTRAZENECA-2013SE27563

PATIENT
  Age: 71 Year
  Sex: Male
  Weight: 83.9 kg

DRUGS (14)
  1. NEXIUM [Suspect]
     Indication: GASTROOESOPHAGEAL REFLUX DISEASE
     Route: 048
     Dates: start: 1995, end: 2008
  2. NEXIUM [Suspect]
     Indication: GASTROOESOPHAGEAL REFLUX DISEASE
     Route: 048
     Dates: start: 20051227, end: 2008
  3. OMEPRAZOLE [Suspect]
     Indication: GASTROOESOPHAGEAL REFLUX DISEASE
     Dosage: 20 DAILY
     Route: 048
     Dates: start: 2008
  4. PREVACID [Suspect]
     Route: 065
  5. TUMS [Concomitant]
  6. LOSARTAN [Concomitant]
     Indication: CARDIAC DISORDER
     Dosage: 50/12.5 DAILY
  7. METOPROLOL [Concomitant]
     Indication: CARDIAC DISORDER
     Dosage: 25 HALD TWO DAILY
     Dates: start: 20090921
  8. MINIPRX [Concomitant]
     Indication: RESTLESS LEGS SYNDROME
     Dosage: 11/2 ONE DAILY
  9. MULTIVITAMIN [Concomitant]
  10. MIRAPEX [Concomitant]
     Route: 048
     Dates: start: 20050524
  11. ZOLPIDEM [Concomitant]
     Dates: start: 20090403
  12. TAGAMET [Concomitant]
  13. PEPCID [Concomitant]
  14. SYMBICORT [Concomitant]

REACTIONS (10)
  - Fall [Unknown]
  - Femur fracture [Unknown]
  - Back disorder [Unknown]
  - Hip fracture [Unknown]
  - Osteoporosis [Unknown]
  - Bone disorder [Unknown]
  - Calcium deficiency [Unknown]
  - Chronic obstructive pulmonary disease [Unknown]
  - Chest pain [Unknown]
  - Depression [Unknown]
